FAERS Safety Report 23021170 (Version 8)
Quarter: 2024Q4

REPORT INFORMATION
  Report Type: Spontaneous
  Country: US (occurrence: US)
  Receive Date: 20231003
  Receipt Date: 20241219
  Transmission Date: 20250115
  Serious: Yes (Hospitalization)
  Sender: VERTEX
  Company Number: US-VERTEX PHARMACEUTICALS-2023-014488

PATIENT
  Sex: Female

DRUGS (2)
  1. TRIKAFTA [Suspect]
     Active Substance: ELEXACAFTOR\IVACAFTOR\TEZACAFTOR
     Indication: Cystic fibrosis
     Dosage: UNK FREQ
     Route: 048
  2. PROGESTERONE [Concomitant]
     Active Substance: PROGESTERONE
     Indication: Contraception

REACTIONS (11)
  - Blood bilirubin increased [Recovering/Resolving]
  - Hepatic enzyme abnormal [Unknown]
  - Respiratory syncytial virus infection [Unknown]
  - Parainfluenzae virus infection [Unknown]
  - Influenza [Unknown]
  - Pulmonary function test decreased [Unknown]
  - Memory impairment [Unknown]
  - COVID-19 [Unknown]
  - Anxiety [Recovering/Resolving]
  - Illness [Unknown]
  - Haemoptysis [Recovered/Resolved]
